FAERS Safety Report 23756887 (Version 1)
Quarter: 2024Q2

REPORT INFORMATION
  Report Type: Report from Study
  Country: US (occurrence: US)
  Receive Date: 20240418
  Receipt Date: 20240418
  Transmission Date: 20240715
  Serious: Yes (Other)
  Sender: FDA-Public Use
  Company Number: US-ARGENX-2024-ARGX-US002404

PATIENT

DRUGS (1)
  1. VYVGART HYTRULO [Suspect]
     Active Substance: EFGARTIGIMOD ALFA\HYALURONIDASE-QVFC
     Indication: Product used for unknown indication
     Dosage: UNK
     Route: 058
     Dates: start: 20240320

REACTIONS (6)
  - Dyspnoea at rest [Unknown]
  - Injection site bruising [Unknown]
  - Injection site pain [Unknown]
  - Muscle spasms [Unknown]
  - Walking aid user [Unknown]
  - Vitreous floaters [Unknown]
